FAERS Safety Report 23537926 (Version 2)
Quarter: 2024Q1

REPORT INFORMATION
  Report Type: Other
  Country: IT (occurrence: None)
  Receive Date: 20240219
  Receipt Date: 20240226
  Transmission Date: 20240410
  Serious: Yes (Other)
  Sender: FDA-Public Use
  Company Number: IT-ROCHE-3510800

PATIENT
  Age: 56 Year
  Sex: Female
  Weight: 55 kg

DRUGS (9)
  1. OCRELIZUMAB [Suspect]
     Active Substance: OCRELIZUMAB
     Indication: Relapsing-remitting multiple sclerosis
     Route: 042
     Dates: start: 20200924, end: 20200924
  2. OCRELIZUMAB [Suspect]
     Active Substance: OCRELIZUMAB
     Route: 042
     Dates: start: 20201009, end: 20201009
  3. OCRELIZUMAB [Suspect]
     Active Substance: OCRELIZUMAB
     Route: 042
     Dates: start: 20210413, end: 20210413
  4. OCRELIZUMAB [Suspect]
     Active Substance: OCRELIZUMAB
     Route: 042
     Dates: start: 20211019, end: 20211019
  5. OCRELIZUMAB [Suspect]
     Active Substance: OCRELIZUMAB
     Route: 042
     Dates: start: 20220426, end: 20220426
  6. OCRELIZUMAB [Suspect]
     Active Substance: OCRELIZUMAB
     Route: 042
     Dates: start: 20221115, end: 20221115
  7. OCRELIZUMAB [Suspect]
     Active Substance: OCRELIZUMAB
     Route: 042
     Dates: start: 20230605, end: 20230605
  8. OCRELIZUMAB [Suspect]
     Active Substance: OCRELIZUMAB
     Route: 042
     Dates: start: 20240109, end: 20240109
  9. FLUOXETINE HYDROCHLORIDE [Concomitant]
     Active Substance: FLUOXETINE HYDROCHLORIDE
     Route: 048
     Dates: start: 20210428

REACTIONS (2)
  - Oral herpes [Recovered/Resolved]
  - Severe acute respiratory syndrome [Recovered/Resolved]

NARRATIVE: CASE EVENT DATE: 20231130
